FAERS Safety Report 24950650 (Version 1)
Quarter: 2025Q1

REPORT INFORMATION
  Report Type: Spontaneous
  Country: ES (occurrence: ES)
  Receive Date: 20250210
  Receipt Date: 20250210
  Transmission Date: 20250408
  Serious: Yes (Hospitalization)
  Sender: SANDOZ
  Company Number: None

PATIENT
  Age: 83 Year
  Sex: Male
  Weight: 85 kg

DRUGS (3)
  1. CEFTRIAXONE [Suspect]
     Active Substance: CEFTRIAXONE
     Indication: Cystitis escherichia
     Dosage: 2 G, Q24H, (2GR CADA 24 HORAS)
     Route: 042
     Dates: start: 20250108, end: 20250109
  2. CIPROFLOXACIN [Suspect]
     Active Substance: CIPROFLOXACIN
     Indication: Cystitis escherichia
     Dosage: 500 MG, Q12H, (CADA 24 HORAS)
     Route: 042
     Dates: start: 20250114, end: 20250115
  3. ERTAPENEM [Suspect]
     Active Substance: ERTAPENEM
     Indication: Cystitis escherichia
     Dosage: 1 G, Q24H, (1 CADA 24 HORAS)
     Route: 042
     Dates: start: 20250108, end: 20250114

REACTIONS (1)
  - Clostridium difficile infection [Recovering/Resolving]

NARRATIVE: CASE EVENT DATE: 20250115
